FAERS Safety Report 5566864-3 (Version None)
Quarter: 2007Q4

REPORT INFORMATION
  Report Type: 
  Country: None (occurrence: None)
  Receive Date: 20071219
  Receipt Date: 20070423
  Transmission Date: 20080405
  Serious: No
  Sender: FDA-Public Use
  Company Number: US-ABBOTT-07P-163-0364278-00

PATIENT
  Sex: Male
  Weight: 71.278 kg

DRUGS (6)
  1. NIMBEX 10MG/ML INJECTION, 20 ML S-D VIAL [Suspect]
     Indication: INTUBATION
     Route: 042
     Dates: start: 20070329, end: 20070329
  2. NIMBEX 10MG/ML INJECTION, 20 ML S-D VIAL [Suspect]
     Route: 042
     Dates: start: 20070320, end: 20070321
  3. PROPOFOL [Concomitant]
     Indication: DRUG USE FOR UNKNOWN INDICATION
  4. STEROIDS [Concomitant]
     Indication: DRUG USE FOR UNKNOWN INDICATION
  5. VANCOMYCIN [Concomitant]
     Indication: DRUG USE FOR UNKNOWN INDICATION
  6. METHYLPREDNISOLONE [Concomitant]
     Indication: DRUG USE FOR UNKNOWN INDICATION

REACTIONS (1)
  - DRUG INEFFECTIVE [None]
